FAERS Safety Report 7541526-1 (Version None)
Quarter: 2011Q2

REPORT INFORMATION
  Report Type: 
  Country: None (occurrence: None)
  Receive Date: 20110613
  Receipt Date: 20110606
  Transmission Date: 20111010
  Serious: Yes (Death, Hospitalization)
  Sender: FDA-Public Use
  Company Number: US-BRISTOL-MYERS SQUIBB COMPANY-15814155

PATIENT
  Sex: Female

DRUGS (3)
  1. CARBOPLATIN [Suspect]
     Indication: OVARIAN CANCER
     Dosage: 1 DF: AUC 6
     Route: 042
  2. DOCETAXEL [Suspect]
     Indication: OVARIAN CANCER
     Route: 042
  3. ERLOTINIB HYDROCHLORIDE [Suspect]
     Indication: OVARIAN CANCER
     Route: 048

REACTIONS (3)
  - LARGE INTESTINE PERFORATION [None]
  - ANASTOMOTIC LEAK [None]
  - NEOPLASM MALIGNANT [None]
